FAERS Safety Report 6742344-4 (Version None)
Quarter: 2010Q2

REPORT INFORMATION
  Report Type: 
  Country: None (occurrence: None)
  Receive Date: 20100526
  Receipt Date: 20100518
  Transmission Date: 20101027
  Serious: Yes (Life-Threatening)
  Sender: FDA-Public Use
  Company Number: JP-BRISTOL-MYERS SQUIBB COMPANY-15111982

PATIENT
  Age: 11 Year
  Sex: Female

DRUGS (6)
  1. PARAPLATIN [Suspect]
     Indication: BONE SARCOMA
     Dosage: 1 DF= 1 G/M2
     Route: 041
  2. VEPESID [Suspect]
     Indication: BONE SARCOMA
     Route: 041
  3. DOXORUBICIN HCL [Suspect]
     Indication: BONE SARCOMA
  4. IFOSFAMIDE [Suspect]
     Indication: BONE SARCOMA
     Dosage: 1 DF= 29 G/M2
  5. CISPLATIN [Suspect]
     Indication: BONE SARCOMA
     Route: 041
  6. METHOTREXATE [Suspect]
     Indication: BONE SARCOMA

REACTIONS (1)
  - EWING'S SARCOMA [None]
